FAERS Safety Report 4981223-X (Version None)
Quarter: 2006Q2

REPORT INFORMATION
  Report Type: 
  Country: None (occurrence: None)
  Receive Date: 20060424
  Receipt Date: 20060308
  Transmission Date: 20061013
  Serious: Yes (Hospitalization)
  Sender: FDA-Public Use
  Company Number: JP-BOEHRINGER INGELHEIM PHARMACEUTICALS, INC.-2006-BP-02741NB

PATIENT
  Sex: Male
  Weight: 56.5 kg

DRUGS (4)
  1. MICARDIS [Suspect]
     Indication: HYPERTENSION
     Route: 048
     Dates: start: 20050721, end: 20050811
  2. MAINTATE [Suspect]
     Indication: HYPERTENSION
     Route: 048
     Dates: start: 20050812, end: 20050815
  3. THEO-DUR [Concomitant]
     Indication: ASTHMA
     Route: 048
     Dates: start: 20040401
  4. QVAR 40 [Concomitant]
     Indication: ASTHMA
     Route: 055
     Dates: start: 20040401

REACTIONS (2)
  - INTERSTITIAL LUNG DISEASE [None]
  - PULMONARY FIBROSIS [None]
